FAERS Safety Report 26217282 (Version 1)
Quarter: 2025Q4

REPORT INFORMATION
  Report Type: Spontaneous
  Country: US (occurrence: US)
  Receive Date: 20251231
  Receipt Date: 20251231
  Transmission Date: 20260117
  Serious: No
  Sender: Kenvue
  Company Number: US-KENVUE-20251201721

PATIENT
  Age: 26 Year
  Sex: Male

DRUGS (4)
  1. LOPERAMIDE HYDROCHLORIDE [Interacting]
     Active Substance: LOPERAMIDE HYDROCHLORIDE
     Indication: Product used for unknown indication
     Route: 065
  2. LUMRYZ [Concomitant]
     Active Substance: SODIUM OXYBATE
     Indication: Narcolepsy
     Dosage: 4.5 GRAM, ONCE NIGHTLY
     Route: 061
     Dates: start: 20240705, end: 2024
  3. LUMRYZ [Concomitant]
     Active Substance: SODIUM OXYBATE
     Dosage: 6 GRAM, ONCE NIGHTLY
     Route: 061
     Dates: start: 2024
  4. LUMRYZ [Concomitant]
     Active Substance: SODIUM OXYBATE
     Dosage: 7.5 GRAM, ONCE NIGHTLY
     Route: 061

REACTIONS (2)
  - Initial insomnia [Unknown]
  - Drug interaction [Unknown]

NARRATIVE: CASE EVENT DATE: 20251001
